FAERS Safety Report 5964857-5 (Version None)
Quarter: 2008Q4

REPORT INFORMATION
  Report Type: 
  Country: None (occurrence: None)
  Receive Date: 20081121
  Receipt Date: 20081115
  Transmission Date: 20090506
  Serious: Yes (Hospitalization, Other)
  Sender: FDA-Public Use
  Company Number: CHPA2008US19839

PATIENT
  Sex: Male

DRUGS (1)
  1. BENEFIBER SUGAR FREE (NCH) (WHEAT DEXTRIN) CHEWABLE TABLET [Suspect]
     Dosage: 32190 MG, PER DAY, ORAL
     Route: 048

REACTIONS (2)
  - INTRACRANIAL HYPOTENSION [None]
  - OVERDOSE [None]
